FAERS Safety Report 6895361-8 (Version None)
Quarter: 2010Q3

REPORT INFORMATION
  Report Type: 
  Country: None (occurrence: None)
  Receive Date: 20100708
  Receipt Date: 20090914
  Transmission Date: 20110219
  Serious: Yes (Other)
  Sender: FDA-Public Use
  Company Number: 2009268415

PATIENT
  Age: 42 Year
  Sex: Female
  Weight: 113.4 kg

DRUGS (29)
  1. CHANTIX [Suspect]
     Indication: SMOKING CESSATION THERAPY
     Dosage: 1 MG, 2X/DAY, ORAL
     Route: 048
     Dates: start: 20090901, end: 20090910
  2. CAMPRAL [Concomitant]
  3. VISTARIL [Concomitant]
  4. WELLBUTRIN SR [Concomitant]
  5. DEPAKOTE [Concomitant]
  6. PROVIGIL [Concomitant]
  7. SEROQUEL [Concomitant]
  8. ABILIFY (ARIPRAZOLE) [Concomitant]
  9. LYRICA [Concomitant]
  10. MORPHINE SULFATE INJ [Concomitant]
  11. SKELAXIN [Concomitant]
  12. NASONEX (MOMERASONE FUROATE) [Concomitant]
  13. NUMOISYN (ELECTROLYTES NOS, MACROGOL,MALIC ACID, SORBITOL) [Concomitant]
  14. PLAQUENIL (HYDROXYCHLOROQYINE PHOSPHATE) [Concomitant]
  15. METHOTREXATE [Concomitant]
  16. FOLIC ACID [Concomitant]
  17. PREDNISONE [Concomitant]
  18. SYNTHROID [Concomitant]
  19. GLIMEPRIDE (GLIMEPRIDE) [Concomitant]
  20. POTASSIUM CHLORIDE [Concomitant]
  21. BUMEX [Concomitant]
  22. TOPROL-XL [Concomitant]
  23. NEXIUM [Concomitant]
  24. VOLTAREN [Concomitant]
  25. MIRENA [Concomitant]
  26. CALCIUM (CALCIUM) [Concomitant]
  27. GLUCOSAMINE (GLUCOSAMINE) [Concomitant]
  28. MULTIVITAMIN (ASCORBIC ACID, ERGOCALCIFEROL, FOLIC ACID, NICOTINE, PAN [Concomitant]
  29. LOVAZA [Concomitant]

REACTIONS (5)
  - ABNORMAL BEHAVIOUR [None]
  - BACK PAIN [None]
  - HALLUCINATION [None]
  - PSYCHOTIC DISORDER [None]
  - SOMNOLENCE [None]
